FAERS Safety Report 23235543 (Version 1)
Quarter: 2023Q4

REPORT INFORMATION
  Report Type: Spontaneous
  Country: US (occurrence: US)
  Receive Date: 20231128
  Receipt Date: 20231128
  Transmission Date: 20240109
  Serious: No
  Sender: FDA-Public Use
  Company Number: US-PFIZER INC-PV202300142235

PATIENT
  Age: 78 Year

DRUGS (1)
  1. PREMARIN [Suspect]
     Active Substance: ESTROGENS, CONJUGATED
     Dosage: TAKE VAGINAL EVERY 6 DAYS
     Route: 067

REACTIONS (3)
  - Off label use [Unknown]
  - Product prescribing issue [Unknown]
  - Nasopharyngitis [Unknown]
